FAERS Safety Report 22631156 (Version 7)
Quarter: 2025Q4

REPORT INFORMATION
  Report Type: Spontaneous
  Country: EU (occurrence: EU)
  Receive Date: 20230623
  Receipt Date: 20251201
  Transmission Date: 20260118
  Serious: Yes (Death, Hospitalization, Other)
  Sender: PFIZER
  Company Number: EU-002147023-NVSC2023SI121035

PATIENT
  Age: 42 Year
  Sex: Male
  Weight: 62 kg

DRUGS (13)
  1. INFLIXIMAB [Interacting]
     Active Substance: INFLIXIMAB
     Indication: Diarrhoea
     Dosage: 300 MG
     Route: 042
     Dates: start: 20220708
  2. INFLIXIMAB [Interacting]
     Active Substance: INFLIXIMAB
     Indication: Abdominal pain upper
  3. INFLIXIMAB [Interacting]
     Active Substance: INFLIXIMAB
     Indication: Weight decreased
  4. SULFAMETHOXAZOLE\TRIMETHOPRIM [Interacting]
     Active Substance: SULFAMETHOXAZOLE\TRIMETHOPRIM
     Indication: Abdominal pain upper
     Dosage: 1 DOSAGE FORM (80/400)
     Route: 048
     Dates: start: 20220707
  5. SULFAMETHOXAZOLE\TRIMETHOPRIM [Interacting]
     Active Substance: SULFAMETHOXAZOLE\TRIMETHOPRIM
     Indication: Weight decreased
  6. SULFAMETHOXAZOLE\TRIMETHOPRIM [Interacting]
     Active Substance: SULFAMETHOXAZOLE\TRIMETHOPRIM
     Indication: Diarrhoea
  7. ISONIAZID [Interacting]
     Active Substance: ISONIAZID
     Indication: Antibiotic prophylaxis
     Dosage: UNK
     Route: 065
  8. RIFAMPIN [Interacting]
     Active Substance: RIFAMPIN
     Indication: Antibiotic prophylaxis
     Dosage: 300/150 MG (2 DOSAGE FORM, QD)
     Route: 065
     Dates: start: 20220714, end: 20221015
  9. ERGOCALCIFEROL [Concomitant]
     Active Substance: ERGOCALCIFEROL
     Dosage: UNK
     Route: 065
  10. MEDROL [Concomitant]
     Active Substance: METHYLPREDNISOLONE
     Indication: Metastases to nervous system
     Dosage: 32 MG
     Route: 048
     Dates: start: 20220713, end: 20220716
  11. SOLU-MEDROL [Concomitant]
     Active Substance: METHYLPREDNISOLONE SODIUM SUCCINATE
     Dosage: 2 MG/KG, 1X/DAY
     Route: 042
     Dates: start: 20220705, end: 20220713
  12. CHOLECALCIFEROL [Concomitant]
     Active Substance: CHOLECALCIFEROL
     Dosage: 1 DF (1 DOSAGE FORM (80/400))
     Route: 048
  13. ISONIAZID\RIFAMPIN [Concomitant]
     Active Substance: ISONIAZID\RIFAMPIN
     Dosage: [ISONIAZID 150 MG]/[RIFAMPICIN 300MG]
     Dates: start: 20220714, end: 20221015

REACTIONS (21)
  - Disease progression [Fatal]
  - Metastases to central nervous system [Fatal]
  - Enterocolitis [Unknown]
  - Mucous stools [Recovering/Resolving]
  - Asthenia [Unknown]
  - Haematochezia [Recovering/Resolving]
  - Inflammatory bowel disease [Unknown]
  - Drug interaction [Unknown]
  - Liver disorder [Unknown]
  - Aspartate aminotransferase increased [Unknown]
  - Alanine aminotransferase increased [Unknown]
  - Metastases to soft tissue [Not Recovered/Not Resolved]
  - Diarrhoea [Recovered/Resolved]
  - Weight decreased [Recovered/Resolved]
  - Abdominal pain upper [Recovered/Resolved]
  - Decreased appetite [Unknown]
  - Serum ferritin increased [Unknown]
  - Transferrin decreased [Unknown]
  - Interferon gamma release assay positive [Unknown]
  - Nausea [Unknown]
  - Off label use [Unknown]

NARRATIVE: CASE EVENT DATE: 20220701
